FAERS Safety Report 4894730-5 (Version None)
Quarter: 2006Q1

REPORT INFORMATION
  Report Type: 
  Country: None (occurrence: None)
  Receive Date: 20060127
  Receipt Date: 20060127
  Transmission Date: 20060701
  Serious: No
  Sender: FDA-Public Use
  Company Number: None

PATIENT
  Age: 44 Year
  Sex: Female
  Weight: 70.3075 kg

DRUGS (1)
  1. KETEK [Suspect]
     Indication: PNEUMONIA
     Dates: start: 20050315, end: 20050319

REACTIONS (2)
  - AGEUSIA [None]
  - ANOSMIA [None]
